FAERS Safety Report 10156654 (Version 1)
Quarter: 2014Q2

REPORT INFORMATION
  Report Type: Spontaneous
  Country: US (occurrence: US)
  Receive Date: 20140507
  Receipt Date: 20140507
  Transmission Date: 20141212
  Serious: Yes (Other)
  Sender: FDA-Public Use
  Company Number: US-AMGEN-USASP2014031462

PATIENT
  Age: 65 Year
  Sex: Female

DRUGS (3)
  1. PROLIA [Suspect]
     Indication: OSTEOPOROSIS POSTMENOPAUSAL
     Dosage: UNK
     Route: 065
     Dates: start: 20130815
  2. CALCIUM [Concomitant]
  3. VITAMIN D                          /00107901/ [Concomitant]

REACTIONS (12)
  - Fall [Unknown]
  - Hand fracture [Recovered/Resolved]
  - Joint dislocation [Unknown]
  - Migraine with aura [Recovered/Resolved]
  - Feeling abnormal [Unknown]
  - Photopsia [Recovered/Resolved]
  - Hypotonia [Recovered/Resolved]
  - Pain in jaw [Recovered/Resolved]
  - Hypoaesthesia [Unknown]
  - Muscle tightness [Unknown]
  - Oral pain [Unknown]
  - Myalgia [Unknown]
